FAERS Safety Report 11334027 (Version 1)
Quarter: 2015Q3

REPORT INFORMATION
  Report Type: Spontaneous
  Country: US (occurrence: US)
  Receive Date: 20150803
  Receipt Date: 20150803
  Transmission Date: 20151125
  Serious: No
  Sender: FDA-Public Use
  Company Number: US-SA-2014SA176897

PATIENT
  Age: 54 Year
  Sex: Female
  Weight: 106.5 kg

DRUGS (3)
  1. TYLENOL PM [Concomitant]
     Active Substance: ACETAMINOPHEN\DIPHENHYDRAMINE
     Route: 065
  2. VALIUM [Concomitant]
     Active Substance: DIAZEPAM
     Route: 065
  3. AMBIEN [Suspect]
     Active Substance: ZOLPIDEM TARTRATE
     Route: 065

REACTIONS (2)
  - Middle insomnia [Unknown]
  - Drug ineffective [Unknown]
